FAERS Safety Report 9694949 (Version 1)
Quarter: 2013Q4

REPORT INFORMATION
  Report Type: Spontaneous
  Country: US (occurrence: US)
  Receive Date: 20131119
  Receipt Date: 20131119
  Transmission Date: 20140711
  Serious: No
  Sender: FDA-Public Use
  Company Number: US-PFIZER INC-2013328362

PATIENT
  Age: 43 Year
  Sex: Female
  Weight: 99.8 kg

DRUGS (2)
  1. LYRICA [Suspect]
     Dosage: UNK
     Dates: start: 2012, end: 2012
  2. PERCOCET [Concomitant]
     Dosage: UNK

REACTIONS (3)
  - Drug ineffective [Unknown]
  - Nausea [Unknown]
  - Malaise [Unknown]
